FAERS Safety Report 5098030-2 (Version None)
Quarter: 2006Q3

REPORT INFORMATION
  Report Type: 
  Country: None (occurrence: None)
  Receive Date: 20060906
  Receipt Date: 20060325
  Transmission Date: 20061208
  Serious: No
  Sender: FDA-Public Use
  Company Number: US-GLAXOSMITHKLINE-A0599005A

PATIENT
  Age: 41 Year
  Sex: Female

DRUGS (1)
  1. REQUIP [Suspect]
     Indication: RESTLESS LEGS SYNDROME
     Dosage: .5MG UNKNOWN
     Route: 048

REACTIONS (3)
  - CONTUSION [None]
  - PRURITUS [None]
  - RASH [None]
